FAERS Safety Report 9761668 (Version 1)
Quarter: 2013Q4

REPORT INFORMATION
  Report Type: Spontaneous
  Country: CH (occurrence: None)
  Receive Date: 20131212
  Receipt Date: 20131212
  Transmission Date: 20140711
  Serious: Yes (Other)
  Sender: FDA-Public Use
  Company Number: 2013P1021723

PATIENT
  Age: 28 Year
  Sex: Female

DRUGS (3)
  1. RISPERIDONE [Suspect]
     Indication: OBSESSIVE-COMPULSIVE DISORDER
  2. QUETIAPINE [Suspect]
  3. VENLAFAXINE [Suspect]

REACTIONS (2)
  - Rabbit syndrome [None]
  - Akathisia [None]
